FAERS Safety Report 6279349-6 (Version None)
Quarter: 2009Q3

REPORT INFORMATION
  Report Type: 
  Country: None (occurrence: None)
  Receive Date: 20090723
  Receipt Date: 20080714
  Transmission Date: 20100115
  Serious: Yes (Hospitalization)
  Sender: FDA-Public Use
  Company Number: US-AMGEN-US295037

PATIENT
  Age: 40 Year
  Sex: Female

DRUGS (3)
  1. PROCRIT [Suspect]
     Indication: ANAEMIA
     Route: 065
     Dates: start: 20080621, end: 20080622
  2. IRON [Concomitant]
     Route: 042
  3. HORMONE NOS [Concomitant]

REACTIONS (1)
  - PULMONARY EMBOLISM [None]
